FAERS Safety Report 22120710 (Version 1)
Quarter: 2023Q1

REPORT INFORMATION
  Report Type: Spontaneous
  Country: US (occurrence: US)
  Receive Date: 20230321
  Receipt Date: 20230321
  Transmission Date: 20230418
  Serious: Yes (Other)
  Sender: FDA-Public Use
  Company Number: US-AMNEAL PHARMACEUTICALS-2023-AMRX-00932

PATIENT
  Age: 65 Year
  Sex: Female

DRUGS (1)
  1. ALYMSYS [Suspect]
     Active Substance: BEVACIZUMAB-MALY
     Indication: Diabetic retinopathy
     Dosage: UNK

REACTIONS (4)
  - Retinal haemorrhage [Unknown]
  - Anterior chamber inflammation [Unknown]
  - Retinal vascular occlusion [Unknown]
  - Beta-2 glycoprotein antibody positive [Unknown]
